FAERS Safety Report 7518109-2 (Version None)
Quarter: 2011Q2

REPORT INFORMATION
  Report Type: 
  Country: None (occurrence: None)
  Receive Date: 20110523
  Receipt Date: 20110512
  Transmission Date: 20111010
  Serious: Yes (Hospitalization)
  Sender: FDA-Public Use
  Company Number: 2009AC000418

PATIENT
  Age: 72 Year
  Sex: Female

DRUGS (24)
  1. ASPIRIN [Concomitant]
  2. BENTYL [Concomitant]
  3. COUMADIN [Concomitant]
  4. TYLENOL-500 [Concomitant]
  5. BENTYL [Concomitant]
  6. CALCIUM CARBONATE [Concomitant]
  7. DIOVAN [Concomitant]
  8. MICARDIS [Concomitant]
  9. EVISTA [Concomitant]
  10. FORTICAL [Concomitant]
  11. EVISTA [Concomitant]
  12. COUMADIN [Concomitant]
  13. ASPIRIN [Concomitant]
  14. MULTI-VITAMIN [Concomitant]
  15. DIGOXIN [Suspect]
     Indication: CARDIAC DISORDER
     Dosage: 0.125 MG, QD, PO
     Route: 048
     Dates: start: 20060901, end: 20080501
  16. LIBITROL [Concomitant]
  17. OMEPRAZOLE [Concomitant]
  18. PRILOSEC [Concomitant]
  19. LIMBITROL [Concomitant]
  20. MICARDIS HCT [Concomitant]
  21. ROCEPHIN [Concomitant]
  22. VITAMIN D [Concomitant]
  23. IRON SULFATETHIAMIN COMPOUND TAB [Concomitant]
  24. CALCIUM CARBONATE [Concomitant]

REACTIONS (47)
  - ANXIETY [None]
  - GRANULOMA [None]
  - PALPITATIONS [None]
  - ATRIAL FIBRILLATION [None]
  - VITAMIN D DEFICIENCY [None]
  - LIVER DISORDER [None]
  - NEUROGENIC BLADDER [None]
  - ECONOMIC PROBLEM [None]
  - NEPHROGENIC ANAEMIA [None]
  - MITRAL VALVE INCOMPETENCE [None]
  - PROTHROMBIN TIME PROLONGED [None]
  - INJURY [None]
  - SOCIAL AVOIDANT BEHAVIOUR [None]
  - ORTHOSTATIC HYPOTENSION [None]
  - HYPERTENSION [None]
  - TACHYCARDIA [None]
  - INTERNATIONAL NORMALISED RATIO INCREASED [None]
  - CARDIAC FAILURE CONGESTIVE [None]
  - GASTROENTERITIS [None]
  - RENAL DISORDER [None]
  - ANAEMIA [None]
  - WEIGHT DECREASED [None]
  - RENAL FAILURE [None]
  - DYSPEPSIA [None]
  - PAIN [None]
  - URINARY TRACT INFECTION [None]
  - AORTIC VALVE INCOMPETENCE [None]
  - DIARRHOEA [None]
  - ATRIOVENTRICULAR BLOCK FIRST DEGREE [None]
  - TOXICITY TO VARIOUS AGENTS [None]
  - BRADYCARDIA [None]
  - ANHEDONIA [None]
  - BACK PAIN [None]
  - BLOOD THYROID STIMULATING HORMONE ABNORMAL [None]
  - HILAR LYMPHADENOPATHY [None]
  - JAUNDICE [None]
  - NASOPHARYNGITIS [None]
  - ABDOMINAL PAIN UPPER [None]
  - HYPERBILIRUBINAEMIA [None]
  - RHABDOMYOLYSIS [None]
  - DEHYDRATION [None]
  - HYPOVOLAEMIA [None]
  - COAGULOPATHY [None]
  - LACERATION [None]
  - MUSCULOSKELETAL DISCOMFORT [None]
  - PNEUMONIA [None]
  - MYOCARDIAL ISCHAEMIA [None]
